FAERS Safety Report 5711920-X (Version None)
Quarter: 2008Q2

REPORT INFORMATION
  Report Type: 
  Country: None (occurrence: None)
  Receive Date: 20080421
  Receipt Date: 20080411
  Transmission Date: 20081010
  Serious: Yes (Other)
  Sender: FDA-Public Use
  Company Number: CA-PFIZER INC-2008032670

PATIENT
  Age: 63 Year
  Sex: Female

DRUGS (6)
  1. CHAMPIX [Suspect]
     Route: 048
  2. AVAPRO [Concomitant]
  3. CITALOPRAM HYDROBROMIDE [Concomitant]
  4. ASPIRIN [Concomitant]
  5. PARIET [Concomitant]
  6. PROVERA [Concomitant]

REACTIONS (3)
  - AMNESIA [None]
  - CONVULSION [None]
  - URINARY INCONTINENCE [None]
